FAERS Safety Report 5164249-5 (Version None)
Quarter: 2006Q4

REPORT INFORMATION
  Report Type: 
  Country: None (occurrence: None)
  Receive Date: 20060918
  Receipt Date: 20051107
  Transmission Date: 20070319
  Serious: Yes (Other)
  Sender: FDA-Public Use
  Company Number: US-JNJFOC-20051003283

PATIENT
  Age: 8 Year
  Sex: Male
  Weight: 20.8655 kg

DRUGS (2)
  1. TOPAMAX [Suspect]
     Indication: MIGRAINE
     Dosage: 25 MG, IN 1 DAY, ORAL
     Route: 048
     Dates: start: 20040601, end: 20050201
  2. ZOLOFT [Concomitant]

REACTIONS (3)
  - CONFUSIONAL STATE [None]
  - FATIGUE [None]
  - WEIGHT DECREASED [None]
